FAERS Safety Report 21319176 (Version 1)
Quarter: 2022Q3

REPORT INFORMATION
  Report Type: Spontaneous
  Country: US (occurrence: US)
  Receive Date: 20220911
  Receipt Date: 20220911
  Transmission Date: 20221027
  Serious: No
  Sender: FDA-Public Use
  Company Number: US-SA-SAC20220902001580

PATIENT
  Sex: Female

DRUGS (2)
  1. DUPIXENT [Suspect]
     Active Substance: DUPILUMAB
     Dosage: FREQUENCY: OTHER
     Route: 058
  2. ALBUTEROL [Concomitant]
     Active Substance: ALBUTEROL

REACTIONS (2)
  - Injection site rash [Unknown]
  - Joint noise [Unknown]
